FAERS Safety Report 21305287 (Version 1)
Quarter: 2022Q3

REPORT INFORMATION
  Report Type: Other
  Country: CN (occurrence: None)
  Receive Date: 20220907
  Receipt Date: 20220907
  Transmission Date: 20221026
  Serious: Yes (Hospitalization, Other)
  Sender: FDA-Public Use
  Company Number: CN-Square-000088

PATIENT
  Age: 68 Year
  Sex: Male

DRUGS (1)
  1. ACYCLOVIR [Suspect]
     Active Substance: ACYCLOVIR
     Indication: Herpes zoster
     Dosage: 500MG/DAY
     Route: 042

REACTIONS (3)
  - Bickerstaff^s encephalitis [Recovered/Resolved]
  - Hypoaesthesia [Recovered/Resolved]
  - Drug ineffective [Recovered/Resolved]
